FAERS Safety Report 19715509 (Version 2)
Quarter: 2021Q3

REPORT INFORMATION
  Report Type: Report from Study
  Country: IT (occurrence: IT)
  Receive Date: 20210818
  Receipt Date: 20210826
  Transmission Date: 20211014
  Serious: Yes (Hospitalization, Other)
  Sender: FDA-Public Use
  Company Number: IT-MYLANLABS-2021M1052789

PATIENT
  Sex: Female
  Weight: 49.7 kg

DRUGS (13)
  1. LENVATINIB [Suspect]
     Active Substance: LENVATINIB
     Dosage: 17 MILLIGRAM, QD
     Route: 048
     Dates: start: 20210525, end: 20210630
  2. IFOSFAMIDE. [Suspect]
     Active Substance: IFOSFAMIDE
     Dosage: 4500 MILLIGRAM, CYCLE
     Route: 042
     Dates: start: 20210531, end: 20210602
  3. ETOPOSIDE. [Suspect]
     Active Substance: ETOPOSIDE
     Dosage: 150 MILLIGRAM/SQ. METER, CYCLE
     Route: 042
     Dates: start: 20210419, end: 20210421
  4. ETOPOSIDE. [Suspect]
     Active Substance: ETOPOSIDE
     Indication: OSTEOSARCOMA
     Dosage: 150 MILLIGRAM/SQ. METER, CYCLE
     Route: 042
     Dates: start: 20210329, end: 20210331
  5. RESPRIM [Concomitant]
     Active Substance: SULFAMETHOXAZOLE\TRIMETHOPRIM
     Indication: PROPHYLAXIS
     Dosage: 800 MILLIGRAM, QD
     Route: 048
     Dates: start: 20210329
  6. OXYCOD                             /00045603/ [Concomitant]
     Active Substance: OXYCODONE HYDROCHLORIDE
     Indication: PAIN
     Dosage: 5 MILLIGRAM, Q8H
     Route: 048
     Dates: start: 20210317
  7. ETOPOSIDE. [Suspect]
     Active Substance: ETOPOSIDE
     Dosage: 150 MILLIGRAM/SQ. METER, CYCLE
     Route: 042
     Dates: start: 20210510, end: 20210511
  8. ETOPOSIDE. [Suspect]
     Active Substance: ETOPOSIDE
     Dosage: 150 MILLIGRAM/SQ. METER, CYCLE
     Route: 042
     Dates: start: 20210531, end: 20210602
  9. IFOSFAMIDE. [Suspect]
     Active Substance: IFOSFAMIDE
     Indication: OSTEOSARCOMA
     Dosage: 6500 MILLIGRAM, CYCLE
     Route: 042
     Dates: start: 20210329, end: 20210331
  10. IFOSFAMIDE. [Suspect]
     Active Substance: IFOSFAMIDE
     Dosage: 4530 MILLIGRAM, CYCLE
     Route: 042
     Dates: start: 20210419, end: 20210421
  11. IFOSFAMIDE. [Suspect]
     Active Substance: IFOSFAMIDE
     Dosage: 4500 MILLIGRAM, CYCLE
     Route: 042
     Dates: start: 20210510, end: 20210511
  12. LENVATINIB [Suspect]
     Active Substance: LENVATINIB
     Indication: OSTEOSARCOMA
     Dosage: 21 MILLIGRAM, QD
     Route: 048
     Dates: start: 20210329, end: 20210422
  13. LENVATINIB [Suspect]
     Active Substance: LENVATINIB
     Dosage: 17 MILLIGRAM, QD
     Route: 048
     Dates: start: 20210428, end: 20210521

REACTIONS (9)
  - Abdominal pain [Recovered/Resolved with Sequelae]
  - Cholecystitis [Recovered/Resolved]
  - Hypophosphataemia [Recovered/Resolved]
  - Febrile neutropenia [Recovered/Resolved]
  - Dehydration [Recovered/Resolved]
  - Diarrhoea [Recovered/Resolved]
  - Thrombocytopenia [Recovered/Resolved]
  - Proteinuria [Recovered/Resolved]
  - Syncope [Recovered/Resolved]

NARRATIVE: CASE EVENT DATE: 20210409
